FAERS Safety Report 6094845-2 (Version None)
Quarter: 2009Q1

REPORT INFORMATION
  Report Type: 
  Country: None (occurrence: None)
  Receive Date: 20090227
  Receipt Date: 20090212
  Transmission Date: 20090719
  Serious: Yes (Hospitalization)
  Sender: FDA-Public Use
  Company Number: US-JNJFOC-20090205789

PATIENT
  Sex: Female
  Weight: 98 kg

DRUGS (30)
  1. TYLENOL [Suspect]
  2. TYLENOL [Suspect]
     Indication: ARTHRITIS
  3. TAPENTADOL [Concomitant]
     Indication: PAIN
     Route: 048
  4. ZANTAC [Concomitant]
  5. OMEPRAZOLE [Concomitant]
  6. EPIPEN [Concomitant]
  7. FLONASE [Concomitant]
  8. ADVAIR HFA [Concomitant]
  9. COMBIVENT [Concomitant]
  10. ZYRTEC [Concomitant]
  11. SIMVASTATIN [Concomitant]
  12. ACCOLATE [Concomitant]
  13. LISINOPRIL [Concomitant]
  14. IRON [Concomitant]
  15. NYQUIL [Concomitant]
  16. VICKS DAYQUIL SINUS PRESSURE + PAIN RELIEF W/ IBUPROFEN [Concomitant]
  17. MUCINEX [Concomitant]
  18. AMOXICILLIN [Concomitant]
  19. CIPROFLOXACIN [Concomitant]
  20. MEDROL [Concomitant]
  21. ROBITUSSIN COLD + COUGH [Concomitant]
  22. FISH OIL [Concomitant]
  23. OMNICEF [Concomitant]
  24. XANAX [Concomitant]
  25. METFORMIN [Concomitant]
  26. FLUCONAZOLE [Concomitant]
  27. CORTISONE [Concomitant]
  28. PREDNISONE [Concomitant]
  29. PROVENTIL [Concomitant]
  30. DOXYCYCLINE [Concomitant]

REACTIONS (3)
  - ABDOMINAL PAIN [None]
  - DIARRHOEA [None]
  - OVERDOSE [None]
